FAERS Safety Report 7706684-4 (Version None)
Quarter: 2011Q3

REPORT INFORMATION
  Report Type: 
  Country: None (occurrence: None)
  Receive Date: 20110824
  Receipt Date: 20110822
  Transmission Date: 20111222
  Serious: Yes (Other)
  Sender: FDA-Public Use
  Company Number: US-AMGEN-USASP2011034161

PATIENT
  Age: 85 Year
  Sex: Female

DRUGS (3)
  1. NPLATE [Suspect]
     Indication: IDIOPATHIC THROMBOCYTOPENIC PURPURA
     Dates: start: 20110311, end: 20110408
  2. RITUXIMAB [Concomitant]
  3. CORTICOSTEROIDS [Concomitant]

REACTIONS (4)
  - PANCYTOPENIA [None]
  - MYELODYSPLASTIC SYNDROME [None]
  - DRUG INEFFECTIVE [None]
  - ACUTE MYOCARDIAL INFARCTION [None]
